FAERS Safety Report 6750072-4 (Version None)
Quarter: 2010Q2

REPORT INFORMATION
  Report Type: 
  Country: None (occurrence: None)
  Receive Date: 20100601
  Receipt Date: 20100519
  Transmission Date: 20101027
  Serious: Yes (Death, Hospitalization)
  Sender: FDA-Public Use
  Company Number: US-PFIZER INC-2010039913

PATIENT
  Sex: Male

DRUGS (12)
  1. REVATIO [Suspect]
     Indication: PULMONARY HYPERTENSION
     Dosage: 20 MG, 3X/DAY
  2. ALLOPURINOL [Concomitant]
     Dosage: 100 MG, 1X/DAY
  3. CARDIZEM CD [Concomitant]
     Dosage: 240 MG, 1X/DAY
  4. IRON SULFATETHIAMIN COMPOUND TAB [Concomitant]
     Dosage: 300 MG, 1X/DAY
  5. NEPHRO-VITE [Concomitant]
     Dosage: 240 MG, 1X/DAY
  6. NOVOLOG [Concomitant]
     Dosage: DAILY
  7. PRILOSEC [Concomitant]
     Dosage: 40 MG, 1X/DAY
  8. PROCRIT [Concomitant]
     Dosage: AS DIRECTED
  9. SOLU-CORTEF [Concomitant]
     Dosage: 50 MG, 3X/DAY
  10. ZAROXOLYN [Concomitant]
     Dosage: 3X/WEEK
  11. DDAVP [Concomitant]
     Dosage: UNK
  12. WARFARIN [Concomitant]
     Dosage: 5 MG, 1X/DAY

REACTIONS (9)
  - ANAEMIA OF CHRONIC DISEASE [None]
  - CARDIAC FAILURE CONGESTIVE [None]
  - CHRONIC OBSTRUCTIVE PULMONARY DISEASE [None]
  - COR PULMONALE [None]
  - MENTAL STATUS CHANGES [None]
  - METABOLIC ENCEPHALOPATHY [None]
  - PNEUMONIA [None]
  - RENAL FAILURE [None]
  - TYPE 2 DIABETES MELLITUS [None]
